FAERS Safety Report 8300409-X (Version None)
Quarter: 2012Q2

REPORT INFORMATION
  Report Type: 
  Country: None (occurrence: None)
  Receive Date: 20120420
  Receipt Date: 20120417
  Transmission Date: 20120825
  Serious: Yes (Hospitalization)
  Sender: FDA-Public Use
  Company Number: US-PFIZER INC-2012095329

PATIENT
  Sex: Female
  Weight: 107 kg

DRUGS (10)
  1. REVATIO [Suspect]
     Indication: PULMONARY ARTERIAL PRESSURE
     Dosage: 20 MG, 3X/DAY
     Dates: start: 20110101, end: 20120101
  2. PREDNISONE [Concomitant]
     Indication: ARTHRITIS
     Dosage: 10 MG, DAILY
  3. PLAQUENIL [Concomitant]
     Dosage: 200 MG, 2X/DAY
  4. AMIODARONE [Concomitant]
     Indication: PALPITATIONS
  5. LISINOPRIL [Concomitant]
     Dosage: HALF A TABLET OF 5MG, DAILY
  6. AMIODARONE [Concomitant]
     Indication: HEART RATE INCREASED
     Dosage: 400 MG, DAILY
  7. ACETYLSALICYLIC ACID [Concomitant]
     Dosage: 81 MG, DAILY
  8. FOLIC ACID [Concomitant]
     Dosage: 1 MG, DAILY
  9. WARFARIN SODIUM [Concomitant]
     Indication: PROTEIN S DEFICIENCY
  10. WARFARIN SODIUM [Concomitant]
     Indication: PROTEIN C DEFICIENCY
     Dosage: 2.5 MG, DAILY

REACTIONS (1)
  - CARDIAC FAILURE CONGESTIVE [None]
